FAERS Safety Report 17682912 (Version 7)
Quarter: 2021Q3

REPORT INFORMATION
  Report Type: Spontaneous
  Country: JP (occurrence: JP)
  Receive Date: 20200420
  Receipt Date: 20210729
  Transmission Date: 20211014
  Serious: Yes (Death, Life-Threatening, Hospitalization, Disabling, Other)
  Sender: FDA-Public Use
  Company Number: JP-BRISTOL-MYERS SQUIBB COMPANY-BMS-2020-031537

PATIENT
  Age: 54 Year
  Sex: Male
  Weight: 77.8 kg

DRUGS (3)
  1. OPDIVO [Suspect]
     Active Substance: NIVOLUMAB
     Indication: MALIGNANT MELANOMA
     Dosage: 80 MILLIGRAM, Q3WK
     Route: 041
     Dates: start: 20200326, end: 20200326
  2. YERVOY [Suspect]
     Active Substance: IPILIMUMAB
     Indication: MALIGNANT MELANOMA
     Dosage: 230 MILLIGRAM, Q3WK
     Route: 041
     Dates: start: 20200326, end: 20200326
  3. OPDIVO [Suspect]
     Active Substance: NIVOLUMAB
     Dosage: 240 MILLIGRAM
     Route: 041
     Dates: start: 20200716, end: 20200813

REACTIONS (5)
  - Thyroid disorder [Unknown]
  - Adrenal insufficiency [Recovered/Resolved with Sequelae]
  - Sleep apnoea syndrome [Recovered/Resolved]
  - Malignant neoplasm progression [Fatal]
  - Myasthenia gravis [Recovered/Resolved]

NARRATIVE: CASE EVENT DATE: 20200410
